FAERS Safety Report 4422227-5 (Version None)
Quarter: 2004Q3

REPORT INFORMATION
  Report Type: 
  Country: None (occurrence: None)
  Receive Date: 20040810
  Receipt Date: 20040708
  Transmission Date: 20050211
  Serious: Yes (Hospitalization)
  Sender: FDA-Public Use
  Company Number: PHHO2004ES09697

PATIENT
  Age: 53 Year
  Sex: Female
  Weight: 79 kg

DRUGS (9)
  1. ERL080 [Suspect]
     Indication: RENAL TRANSPLANT
     Dosage: 720 MG, BID
     Route: 048
     Dates: start: 20040524, end: 20040701
  2. ERL080 [Suspect]
     Dosage: 1440 MG / DAY
     Route: 048
     Dates: start: 20040715
  3. NEORAL [Suspect]
     Indication: RENAL TRANSPLANT
     Dosage: 250 MG, BID
     Route: 048
     Dates: start: 20040524, end: 20040601
  4. NEORAL [Suspect]
     Dosage: 275 MG, BID
     Route: 048
     Dates: start: 20040602, end: 20040611
  5. NEORAL [Suspect]
     Dosage: 175 MG, BID
     Route: 048
     Dates: start: 20040612, end: 20040628
  6. NEORAL [Suspect]
     Dosage: 150 MG, BID
     Route: 048
     Dates: start: 20040629
  7. PREDNISONE TAB [Concomitant]
     Indication: RENAL TRANSPLANT
     Dosage: 20 MG / DAY
     Route: 048
     Dates: end: 20040511
  8. PREDNISONE TAB [Concomitant]
     Dosage: 15 MG / DAY
     Route: 048
     Dates: start: 20040512, end: 20040628
  9. PREDNISONE TAB [Concomitant]
     Dosage: 10 MG / DAY
     Route: 048
     Dates: start: 20040629

REACTIONS (3)
  - BACK PAIN [None]
  - HERPES ZOSTER [None]
  - NEURALGIA [None]
